FAERS Safety Report 6686523-3 (Version None)
Quarter: 2010Q2

REPORT INFORMATION
  Report Type: 
  Country: None (occurrence: None)
  Receive Date: 20100419
  Receipt Date: 20100407
  Transmission Date: 20101027
  Serious: Yes (Other)
  Sender: FDA-Public Use
  Company Number: JP-ROCHE-697005

PATIENT
  Age: 31 Year
  Sex: Female

DRUGS (1)
  1. VESANOID [Suspect]
     Indication: ACUTE PROMYELOCYTIC LEUKAEMIA
     Dosage: NOTE: DOSAGE IS UNCERTAIN.
     Route: 048

REACTIONS (1)
  - UTERINE CONTRACTIONS ABNORMAL [None]
